FAERS Safety Report 12093014 (Version 1)
Quarter: 2016Q1

REPORT INFORMATION
  Report Type: Spontaneous
  Country: US (occurrence: US)
  Receive Date: 20160219
  Receipt Date: 20160219
  Transmission Date: 20160526
  Serious: No
  Sender: FDA-Public Use
  Company Number: US-PFIZER INC-2016095453

PATIENT
  Age: 15 Year
  Sex: Female
  Weight: 54.43 kg

DRUGS (4)
  1. DICLOFENAC [Concomitant]
     Active Substance: DICLOFENAC
     Indication: ANTIDEPRESSANT THERAPY
     Dosage: 50 MG, 1X/DAY
     Dates: start: 201508
  2. AMITRIPTYLINE [Concomitant]
     Active Substance: AMITRIPTYLINE
     Indication: NERVE INJURY
     Dosage: 25 MG, 1X/DAY
     Route: 048
     Dates: start: 201508
  3. DICLOFENAC [Concomitant]
     Active Substance: DICLOFENAC
     Indication: SLEEP DISORDER
     Dosage: 50 MG, AS NEEDED
     Dates: start: 201508
  4. GABAPENTIN. [Suspect]
     Active Substance: GABAPENTIN
     Indication: COMPLEX REGIONAL PAIN SYNDROME
     Dosage: 2100 MG, DAILY
     Route: 048
     Dates: start: 201508, end: 201512

REACTIONS (1)
  - Drug ineffective for unapproved indication [Unknown]

NARRATIVE: CASE EVENT DATE: 201512
